FAERS Safety Report 20844733 (Version 4)
Quarter: 2022Q3

REPORT INFORMATION
  Report Type: Spontaneous
  Country: US (occurrence: US)
  Receive Date: 20220518
  Receipt Date: 20220729
  Transmission Date: 20221026
  Serious: No
  Sender: FDA-Public Use
  Company Number: US-PFIZER INC-202200672395

PATIENT
  Age: 67 Year
  Sex: Female

DRUGS (1)
  1. BOSULIF [Suspect]
     Active Substance: BOSUTINIB MONOHYDRATE
     Dosage: 500 MG

REACTIONS (5)
  - Intervertebral disc protrusion [Unknown]
  - Gait inability [Recovered/Resolved]
  - Parosmia [Unknown]
  - Taste disorder [Unknown]
  - Ageusia [Unknown]
